FAERS Safety Report 22754496 (Version 2)
Quarter: 2023Q4

REPORT INFORMATION
  Report Type: Spontaneous
  Country: CZ (occurrence: CZ)
  Receive Date: 20230727
  Receipt Date: 20231005
  Transmission Date: 20240109
  Serious: No
  Sender: FDA-Public Use
  Company Number: CZ-Zentiva-2023-ZT-016569

PATIENT
  Sex: Male

DRUGS (4)
  1. POSACONAZOLE [Suspect]
     Active Substance: POSACONAZOLE
     Indication: Antifungal prophylaxis
     Dosage: UNK
     Route: 048
  2. CYTARABINE [Concomitant]
     Active Substance: CYTARABINE
     Indication: Acute myeloid leukaemia
     Dosage: 2 CYCLES OF CONSOLIDATION THERAPY
  3. CYTARABINE [Concomitant]
     Active Substance: CYTARABINE
     Dosage: 7+3 WITH DAUNORUBICIN
  4. DAUNORUBICIN [Concomitant]
     Active Substance: DAUNORUBICIN
     Indication: Acute myeloid leukaemia
     Dosage: 7+3 WITH CYTARABINE

REACTIONS (1)
  - Drug ineffective [Recovered/Resolved]
